FAERS Safety Report 7280356-5 (Version None)
Quarter: 2011Q1

REPORT INFORMATION
  Report Type: 
  Country: None (occurrence: None)
  Receive Date: 20110208
  Receipt Date: 20110126
  Transmission Date: 20110831
  Serious: Yes (Hospitalization, Other)
  Sender: FDA-Public Use
  Company Number: US-ELI_LILLY_AND_COMPANY-US201009005011

PATIENT
  Sex: Female
  Weight: 45.351 kg

DRUGS (14)
  1. ACETAMINOPHEN AND HYDROCODONE BITARTRATE [Concomitant]
     Indication: PAIN
     Dosage: UNK, AS NEEDED
     Route: 048
  2. CALCIUM CARBONATE [Concomitant]
     Dosage: 1200 MG, 1/D
     Route: 048
  3. BACLOFEN [Concomitant]
     Dosage: 10 MG, 3/D
     Route: 048
  4. LYRICA [Concomitant]
     Dosage: 100 MG, EACH EVENING
     Route: 048
  5. DURAGESIC-50 [Concomitant]
     Dosage: 1 D/F, EVERY 72 HRS
  6. OMNARIS [Concomitant]
     Dosage: 100 UG, DAILY (1/D)
     Route: 045
  7. CRESTOR [Concomitant]
     Dosage: 20 MG, DAILY (1/D)
     Route: 048
  8. ZETIA [Concomitant]
     Dosage: 10 MG, DAILY (1/D)
     Route: 048
  9. FORTEO [Suspect]
     Indication: OSTEOPOROSIS
     Dosage: 20 UG, DAILY (1/D)
     Route: 058
     Dates: start: 20100903
  10. SINGULAIR [Concomitant]
     Dosage: 10 MG, DAILY (1/D)
     Route: 048
  11. ZOFRAN [Concomitant]
     Indication: NAUSEA
     Dosage: 4 MG, 3/D AS NEEDED
  12. TRAZODONE [Concomitant]
     Dosage: 50 MG, DAILY (1/D)
     Route: 048
  13. PREVACID [Concomitant]
     Dosage: 30 MG, 2/D
     Route: 048
  14. TYLENOL (CAPLET) [Concomitant]
     Indication: PAIN
     Dosage: 650 MG, 3/D AS NEEDED

REACTIONS (10)
  - LOSS OF CONSCIOUSNESS [None]
  - ROAD TRAFFIC ACCIDENT [None]
  - DIZZINESS [None]
  - EYE DISORDER [None]
  - HEADACHE [None]
  - RASH GENERALISED [None]
  - RASH [None]
  - HERPES ZOSTER [None]
  - UPPER LIMB FRACTURE [None]
  - FACE INJURY [None]
